FAERS Safety Report 9514570 (Version 2)
Quarter: 2013Q3

REPORT INFORMATION
  Report Type: Spontaneous
  Country: NO (occurrence: None)
  Receive Date: 20130906
  Receipt Date: 20130911
  Transmission Date: 20140515
  Serious: Yes (Death)
  Sender: FDA-Public Use
  Company Number: 1881869

PATIENT
  Age: 58 Year
  Sex: Female

DRUGS (1)
  1. DOCETAXEL [Suspect]
     Indication: PRODUCT USED FOR UNKNOWN INDICATION

REACTIONS (15)
  - Pneumomediastinum [None]
  - Pneumothorax [None]
  - Hypoxia [None]
  - Interstitial lung disease [None]
  - Respiratory failure [None]
  - Lung disorder [None]
  - Mechanical ventilation [None]
  - Blood pressure systolic decreased [None]
  - Condition aggravated [None]
  - Palmar-plantar erythrodysaesthesia syndrome [None]
  - Pain of skin [None]
  - Haemothorax [None]
  - Pulmonary fibrosis [None]
  - Skin exfoliation [None]
  - Pneumopericardium [None]
